FAERS Safety Report 6145721-8 (Version None)
Quarter: 2009Q2

REPORT INFORMATION
  Report Type: 
  Country: None (occurrence: None)
  Receive Date: 20090407
  Receipt Date: 20090402
  Transmission Date: 20091009
  Serious: Yes (Life-Threatening, Hospitalization, Other)
  Sender: FDA-Public Use
  Company Number: PHHY2009JP12579

PATIENT
  Age: 36 Year
  Sex: Male

DRUGS (1)
  1. CARBAMAZEPINE [Suspect]
     Dosage: UNK
     Dates: start: 20020101

REACTIONS (24)
  - ALANINE AMINOTRANSFERASE INCREASED [None]
  - ASPARTATE AMINOTRANSFERASE INCREASED [None]
  - BIOPSY LYMPH GLAND ABNORMAL [None]
  - BIOPSY SKIN ABNORMAL [None]
  - BONE FRAGMENTATION [None]
  - C-REACTIVE PROTEIN INCREASED [None]
  - COMPLEMENT FACTOR DECREASED [None]
  - DRUG ERUPTION [None]
  - DRUG RASH WITH EOSINOPHILIA AND SYSTEMIC SYMPTOMS [None]
  - EPSTEIN-BARR VIRUS INFECTION [None]
  - HEPATIC FUNCTION ABNORMAL [None]
  - HUMAN HERPESVIRUS 6 INFECTION [None]
  - LUPUS NEPHRITIS [None]
  - LYMPHADENITIS [None]
  - LYMPHADENOPATHY [None]
  - LYMPHATIC DISORDER [None]
  - LYMPHOCYTIC INFILTRATION [None]
  - NECROSIS [None]
  - PANCYTOPENIA [None]
  - PROTEINURIA [None]
  - PYREXIA [None]
  - RASH ERYTHEMATOUS [None]
  - SYSTEMIC LUPUS ERYTHEMATOSUS [None]
  - WHITE BLOOD CELL COUNT DECREASED [None]
